FAERS Safety Report 9891353 (Version 1)
Quarter: 2014Q1

REPORT INFORMATION
  Report Type: Spontaneous
  Country: US (occurrence: US)
  Receive Date: 20140212
  Receipt Date: 20140212
  Transmission Date: 20141002
  Serious: No
  Sender: FDA-Public Use
  Company Number: US-PFIZER INC-2014036496

PATIENT
  Sex: 0

DRUGS (3)
  1. FLECTOR [Suspect]
     Indication: BACK PAIN
     Dosage: UNK
  2. FLECTOR [Suspect]
     Indication: PAIN IN EXTREMITY
  3. FLECTOR [Suspect]
     Indication: ARTHRALGIA

REACTIONS (2)
  - Pruritus [Unknown]
  - Skin disorder [Unknown]
